FAERS Safety Report 8881268 (Version 1)
Quarter: 2012Q4

REPORT INFORMATION
  Report Type: 
  Country: US (occurrence: US)
  Receive Date: 20121031
  Receipt Date: 20121031
  Transmission Date: 20130627
  Serious: Yes (Hospitalization, Other)
  Sender: FDA-Public Use
  Company Number: US-ROCHE-1131244

PATIENT
  Sex: Female

DRUGS (2)
  1. RITUXAN [Suspect]
     Indication: SYSTEMIC LUPUS ERYTHEMATOSUS
     Route: 065
     Dates: start: 20040219
  2. RITUXAN [Suspect]
     Indication: OFF LABEL USE

REACTIONS (5)
  - Deep vein thrombosis [Unknown]
  - Malaise [Unknown]
  - No therapeutic response [Unknown]
  - Vomiting [Unknown]
  - Vena cava thrombosis [Unknown]
